FAERS Safety Report 4677404-5 (Version None)
Quarter: 2005Q2

REPORT INFORMATION
  Report Type: 
  Country: None (occurrence: None)
  Receive Date: 20050527
  Receipt Date: 20050527
  Transmission Date: 20051028
  Serious: Yes (Hospitalization)
  Sender: FDA-Public Use
  Company Number: None

PATIENT
  Sex: Male
  Weight: 71 kg

DRUGS (15)
  1. COPEGUS [Suspect]
     Indication: HEPATITIS C
     Dosage: 400MG  BID ORAL
     Route: 048
     Dates: start: 20041001, end: 20050525
  2. PEGASYS [Suspect]
     Indication: HEPATITIS C
     Dosage: 180MCG EVERY FRIDAY SUBCUTANEOUS
     Route: 058
     Dates: start: 20041001, end: 20050525
  3. PERCOCET [Concomitant]
  4. PREDNISONE [Concomitant]
  5. CARBAMAZEPINE [Concomitant]
  6. GABAPENTIN [Concomitant]
  7. SYNTHROID [Concomitant]
  8. SULFAZINE EC [Concomitant]
  9. LEXAPRO [Concomitant]
  10. NIFEDIPINE [Concomitant]
  11. EXELON [Concomitant]
  12. GERITOL COMPLETE [Concomitant]
  13. PEPCID [Concomitant]
  14. TYLENOL (CAPLET) [Concomitant]
  15. CELEBREX [Concomitant]

REACTIONS (3)
  - ANAEMIA [None]
  - CHEST DISCOMFORT [None]
  - DYSPNOEA [None]
